FAERS Safety Report 4719584-9 (Version None)
Quarter: 2005Q3

REPORT INFORMATION
  Report Type: 
  Country: None (occurrence: None)
  Receive Date: 20050721
  Receipt Date: 20031125
  Transmission Date: 20060218
  Serious: No
  Sender: FDA-Public Use
  Company Number: US-GLAXOSMITHKLINE-A0441709A

PATIENT
  Sex: Male

DRUGS (8)
  1. AVANDIA [Suspect]
     Dosage: 4MG CUMULATIVE DOSE
     Route: 048
  2. NASACORT AQ [Concomitant]
     Indication: DRUG USE FOR UNKNOWN INDICATION
  3. LOTENSIN HCT [Concomitant]
     Indication: DRUG USE FOR UNKNOWN INDICATION
     Dosage: 20MG CUMULATIVE DOSE
     Route: 048
  4. CARDURA [Concomitant]
     Indication: DRUG USE FOR UNKNOWN INDICATION
     Route: 048
  5. ATENOLOL [Concomitant]
     Indication: DRUG USE FOR UNKNOWN INDICATION
  6. PRAVACHOL [Concomitant]
     Indication: DRUG USE FOR UNKNOWN INDICATION
  7. GLUCOTROL XL [Concomitant]
     Indication: DRUG USE FOR UNKNOWN INDICATION
  8. PLAVIX [Concomitant]
     Indication: DRUG USE FOR UNKNOWN INDICATION

REACTIONS (1)
  - ADVERSE EVENT [None]
